FAERS Safety Report 5907793-2 (Version None)
Quarter: 2008Q4

REPORT INFORMATION
  Report Type: 
  Country: None (occurrence: None)
  Receive Date: 20081003
  Receipt Date: 20080929
  Transmission Date: 20090506
  Serious: Yes (Hospitalization)
  Sender: FDA-Public Use
  Company Number: BR-ASTRAZENECA-2008UW21145

PATIENT
  Sex: Male

DRUGS (4)
  1. ROSUVASTATIN [Suspect]
     Indication: HYPERCHOLESTEROLAEMIA
     Dosage: DAILY
     Route: 048
     Dates: start: 20080601
  2. ARADOIS [Concomitant]
     Dates: start: 19980101
  3. HYGROTON [Concomitant]
     Dates: start: 19980101
  4. PLAQUETAR [Concomitant]

REACTIONS (4)
  - ABDOMINAL PAIN [None]
  - DIARRHOEA [None]
  - NAUSEA [None]
  - WRONG DRUG ADMINISTERED [None]
